FAERS Safety Report 18097898 (Version 1)
Quarter: 2020Q3

REPORT INFORMATION
  Report Type: Spontaneous
  Country: US (occurrence: US)
  Receive Date: 20200731
  Receipt Date: 20200731
  Transmission Date: 20201103
  Serious: Yes (Hospitalization)
  Sender: FDA-Public Use
  Company Number: None

PATIENT
  Age: 85 Year
  Sex: Female

DRUGS (5)
  1. ONDANSETRON [Concomitant]
     Active Substance: ONDANSETRON
  2. LORAZEPAM. [Concomitant]
     Active Substance: LORAZEPAM
  3. HYDROCO/APAP [Concomitant]
     Active Substance: ACETAMINOPHEN\HYDROCODONE
  4. CAPECITABINE. [Suspect]
     Active Substance: CAPECITABINE
     Indication: ANORECTAL DISORDER
     Route: 048
     Dates: start: 20200515
  5. NITROGLYCERN [Concomitant]

REACTIONS (4)
  - Blood sodium increased [None]
  - Nausea [None]
  - Blood potassium increased [None]
  - Headache [None]
